FAERS Safety Report 16477299 (Version 1)
Quarter: 2019Q2

REPORT INFORMATION
  Report Type: Spontaneous
  Country: US (occurrence: US)
  Receive Date: 20190626
  Receipt Date: 20190626
  Transmission Date: 20190711
  Serious: Yes (Life-Threatening, Hospitalization)
  Sender: FDA-Public Use
  Company Number: US-SUN PHARMACEUTICAL INDUSTRIES LTD-2019R1-211423

PATIENT
  Age: 12 Year
  Sex: Male

DRUGS (2)
  1. LISDEXAMPHETAMINE [Concomitant]
     Active Substance: LISDEXAMFETAMINE
     Indication: PRODUCT USED FOR UNKNOWN INDICATION
     Dosage: UNK
     Route: 065
  2. BUPROPION. [Suspect]
     Active Substance: BUPROPION
     Indication: PRODUCT USED FOR UNKNOWN INDICATION
     Dosage: UNK
     Route: 065

REACTIONS (8)
  - Tachycardia [Recovering/Resolving]
  - Overdose [Unknown]
  - Cardiac arrest [Recovering/Resolving]
  - Seizure [Unknown]
  - Torsade de pointes [Recovering/Resolving]
  - Electrocardiogram QT prolonged [Recovering/Resolving]
  - Cardiogenic shock [Recovering/Resolving]
  - Electrocardiogram QRS complex prolonged [Recovering/Resolving]
